FAERS Safety Report 26055620 (Version 2)
Quarter: 2025Q4

REPORT INFORMATION
  Report Type: Spontaneous
  Country: US (occurrence: US)
  Receive Date: 20251117
  Receipt Date: 20251208
  Transmission Date: 20260118
  Serious: No
  Sender: AMGEN
  Company Number: US-AMGEN-USASP2025221089

PATIENT
  Age: 65 Year
  Sex: Male
  Weight: 97.8 kg

DRUGS (10)
  1. NEULASTA [Suspect]
     Active Substance: PEGFILGRASTIM
     Indication: Prophylaxis
     Dosage: UNK
     Route: 065
  2. NEULASTA [Suspect]
     Active Substance: PEGFILGRASTIM
     Dosage: UNK
     Route: 065
  3. CABAZITAXEL [Concomitant]
     Active Substance: CABAZITAXEL
     Route: 065
  4. CABAZITAXEL [Concomitant]
     Active Substance: CABAZITAXEL
     Dosage: UNK
     Route: 065
  5. CABAZITAXEL [Concomitant]
     Active Substance: CABAZITAXEL
     Route: 065
  6. CABAZITAXEL [Concomitant]
     Active Substance: CABAZITAXEL
     Route: 065
  7. Carbo [Concomitant]
     Route: 065
  8. Carbo [Concomitant]
     Dosage: UNK
     Route: 065
  9. Carbo [Concomitant]
     Route: 065
  10. Carbo [Concomitant]
     Route: 065

REACTIONS (2)
  - Application site haemorrhage [Unknown]
  - Device issue [Unknown]

NARRATIVE: CASE EVENT DATE: 20251001
